FAERS Safety Report 21830263 (Version 1)
Quarter: 2023Q1

REPORT INFORMATION
  Report Type: Other
  Country: CA (occurrence: CA)
  Receive Date: 20230106
  Receipt Date: 20230106
  Transmission Date: 20230417
  Serious: Yes (Hospitalization)
  Sender: FDA-Public Use
  Company Number: CA-GLENMARK PHARMACEUTICALS-2023GMK077560

PATIENT

DRUGS (22)
  1. GABAPENTIN [Suspect]
     Active Substance: GABAPENTIN
     Indication: Language disorder
     Dosage: 400 MILLIGRAM 3 EVERY 1 DAYS
     Route: 065
  2. GABAPENTIN [Suspect]
     Active Substance: GABAPENTIN
     Indication: Intellectual disability
     Dosage: 600 MILLIGRAM 3 EVERY 1 DAYS
     Route: 065
  3. GABAPENTIN [Suspect]
     Active Substance: GABAPENTIN
     Indication: Autism spectrum disorder
  4. CARBAMAZEPINE [Suspect]
     Active Substance: CARBAMAZEPINE
     Indication: Language disorder
     Dosage: 200 MILLIGRAM 2 EVERY 1 DAYS
     Route: 065
  5. CARBAMAZEPINE [Suspect]
     Active Substance: CARBAMAZEPINE
     Indication: Intellectual disability
  6. CARBAMAZEPINE [Suspect]
     Active Substance: CARBAMAZEPINE
     Indication: Autism spectrum disorder
  7. OLANZAPINE [Suspect]
     Active Substance: OLANZAPINE
     Indication: Language disorder
     Dosage: UNK
     Route: 065
  8. OLANZAPINE [Suspect]
     Active Substance: OLANZAPINE
     Indication: Intellectual disability
  9. OLANZAPINE [Suspect]
     Active Substance: OLANZAPINE
     Indication: Autism spectrum disorder
  10. PROCYCLIDINE [Suspect]
     Active Substance: PROCYCLIDINE
     Indication: Language disorder
     Dosage: 5 MILLIGRAM
     Route: 065
  11. PROCYCLIDINE [Suspect]
     Active Substance: PROCYCLIDINE
     Indication: Intellectual disability
  12. PROCYCLIDINE [Suspect]
     Active Substance: PROCYCLIDINE
     Indication: Autism spectrum disorder
  13. ZOPICLONE [Suspect]
     Active Substance: ZOPICLONE
     Indication: Aggression
     Dosage: 15 MILLIGRAM 4 EVERY 1 DAYS
     Route: 065
  14. ZUCLOPENTHIXOL [Suspect]
     Active Substance: ZUCLOPENTHIXOL
     Indication: Language disorder
     Dosage: 25 MILLIGRAM 2 EVERY 1 DAYS
     Route: 065
  15. ZUCLOPENTHIXOL [Suspect]
     Active Substance: ZUCLOPENTHIXOL
     Indication: Intellectual disability
  16. ZUCLOPENTHIXOL [Suspect]
     Active Substance: ZUCLOPENTHIXOL
     Indication: Autism spectrum disorder
  17. FLUOXETINE [Concomitant]
     Active Substance: FLUOXETINE HYDROCHLORIDE
     Indication: Language disorder
     Dosage: 40 MILLIGRAM
     Route: 065
  18. FLUOXETINE [Concomitant]
     Active Substance: FLUOXETINE HYDROCHLORIDE
     Indication: Intellectual disability
  19. FLUOXETINE [Concomitant]
     Active Substance: FLUOXETINE HYDROCHLORIDE
     Indication: Autism spectrum disorder
  20. LOXAPINE [Concomitant]
     Active Substance: LOXAPINE
     Indication: Language disorder
     Dosage: 25 MILLIGRAM 2 EVERY 1 DAYS
     Route: 065
  21. LOXAPINE [Concomitant]
     Active Substance: LOXAPINE
     Indication: Intellectual disability
  22. LOXAPINE [Concomitant]
     Active Substance: LOXAPINE
     Indication: Autism spectrum disorder

REACTIONS (2)
  - Product use in unapproved indication [Unknown]
  - Drug ineffective for unapproved indication [Unknown]
